FAERS Safety Report 6704531-0 (Version None)
Quarter: 2010Q2

REPORT INFORMATION
  Report Type: 
  Country: None (occurrence: None)
  Receive Date: 20100430
  Receipt Date: 20100420
  Transmission Date: 20101027
  Serious: Yes (Other)
  Sender: FDA-Public Use
  Company Number: PHHY2010US25698

PATIENT
  Sex: Female

DRUGS (1)
  1. RECLAST [Suspect]
     Indication: OSTEOPOROSIS
     Dosage: 5 MG, ANNUAL
     Route: 042
     Dates: start: 20100409

REACTIONS (3)
  - COAGULATION TIME PROLONGED [None]
  - HAEMATEMESIS [None]
  - INTERNATIONAL NORMALISED RATIO INCREASED [None]
